FAERS Safety Report 6541444-1 (Version None)
Quarter: 2010Q1

REPORT INFORMATION
  Report Type: 
  Country: None (occurrence: None)
  Receive Date: 20100118
  Receipt Date: 20100108
  Transmission Date: 20100710
  Serious: Yes (Hospitalization, Other)
  Sender: FDA-Public Use
  Company Number: JP-ABBOTT-09P-087-0588962-00

PATIENT
  Sex: Male

DRUGS (6)
  1. NORVIR [Suspect]
     Indication: HIV INFECTION
     Dosage: 100 MG DAILY
     Route: 048
     Dates: start: 20050815, end: 20050818
  2. NORVIR [Suspect]
     Dosage: 200 MG DAILY
     Route: 048
     Dates: start: 20080419
  3. RETROVIR [Suspect]
     Indication: HIV INFECTION
     Route: 048
     Dates: start: 19960926, end: 19991013
  4. RETROVIR [Suspect]
     Route: 048
     Dates: start: 20060329
  5. LEXIVA [Suspect]
     Indication: HIV INFECTION
     Route: 048
     Dates: start: 20080419
  6. TRUVADA [Suspect]
     Indication: HIV INFECTION
     Dosage: ONE TABLET DAILY
     Route: 048
     Dates: start: 20060329

REACTIONS (1)
  - OSTEOMA [None]
